APPROVED DRUG PRODUCT: OCTREOTIDE ACETATE
Active Ingredient: OCTREOTIDE ACETATE
Strength: EQ 0.2MG BASE/ML
Dosage Form/Route: INJECTABLE;INJECTION
Application: A203765 | Product #001 | TE Code: AP
Applicant: HERITAGE PHARMACEUTICALS INC DBA AVET PHARMACEUTICALS INC
Approved: Sep 7, 2018 | RLD: No | RS: No | Type: RX